FAERS Safety Report 7459724-4 (Version None)
Quarter: 2011Q2

REPORT INFORMATION
  Report Type: 
  Country: None (occurrence: None)
  Receive Date: 20110505
  Receipt Date: 20100830
  Transmission Date: 20111010
  Serious: No
  Sender: FDA-Public Use
  Company Number: US-BAYER-201035002NA

PATIENT
  Age: 22 Year
  Sex: Female

DRUGS (1)
  1. YAZ [Suspect]
     Dosage: UNK
     Dates: end: 20100810

REACTIONS (5)
  - PARAESTHESIA [None]
  - PANIC ATTACK [None]
  - DEPRESSION [None]
  - BURNING SENSATION [None]
  - ABDOMINAL DISCOMFORT [None]
